FAERS Safety Report 6531541-9 (Version None)
Quarter: 2010Q1

REPORT INFORMATION
  Report Type: 
  Country: None (occurrence: None)
  Receive Date: 20100108
  Receipt Date: 20091230
  Transmission Date: 20100710
  Serious: Yes (Other)
  Sender: FDA-Public Use
  Company Number: US-BAYER-201010221NA

PATIENT
  Sex: Female

DRUGS (36)
  1. MAGNEVIST [Suspect]
     Indication: NUCLEAR MAGNETIC RESONANCE IMAGING
     Dates: start: 20060802, end: 20060802
  2. MAGNEVIST [Suspect]
     Dates: start: 20060809, end: 20060809
  3. MAGNEVIST [Suspect]
     Dates: start: 20061020, end: 20061020
  4. MAGNEVIST [Suspect]
     Dates: start: 20071013, end: 20071013
  5. OMNISCAN [Suspect]
     Indication: NUCLEAR MAGNETIC RESONANCE IMAGING
  6. OPTIMARK [Suspect]
     Indication: NUCLEAR MAGNETIC RESONANCE IMAGING
  7. PROHANCE [Suspect]
     Indication: NUCLEAR MAGNETIC RESONANCE IMAGING
  8. MULTIHANCE [Suspect]
     Indication: NUCLEAR MAGNETIC RESONANCE IMAGING
  9. UNKNOWN GADOLINIUM BASED CONTRAST AGENT [Suspect]
     Indication: NUCLEAR MAGNETIC RESONANCE IMAGING
     Dates: start: 20041220, end: 20041220
  10. UNKNOWN GADOLINIUM BASED CONTRAST AGENT [Suspect]
     Dates: start: 20050218, end: 20050218
  11. UNKNOWN GADOLINIUM BASED CONTRAST AGENT [Suspect]
     Dates: start: 20050530, end: 20050530
  12. UNKNOWN GADOLINIUM BASED CONTRAST AGENT [Suspect]
     Dates: start: 20050608, end: 20050608
  13. UNKNOWN GADOLINIUM BASED CONTRAST AGENT [Suspect]
     Dates: start: 20050629, end: 20050629
  14. UNKNOWN GADOLINIUM BASED CONTRAST AGENT [Suspect]
     Dates: start: 20060216, end: 20060216
  15. UNKNOWN GADOLINIUM BASED CONTRAST AGENT [Suspect]
     Dates: start: 20060217, end: 20060217
  16. UNKNOWN GADOLINIUM BASED CONTRAST AGENT [Suspect]
     Dates: start: 20060330, end: 20060330
  17. UNKNOWN GADOLINIUM BASED CONTRAST AGENT [Suspect]
     Dates: start: 20060521, end: 20060521
  18. UNKNOWN GADOLINIUM BASED CONTRAST AGENT [Suspect]
     Dates: start: 20060712, end: 20060712
  19. UNKNOWN GADOLINIUM BASED CONTRAST AGENT [Suspect]
     Dates: start: 20061020, end: 20061020
  20. UNKNOWN GADOLINIUM BASED CONTRAST AGENT [Suspect]
     Dates: start: 20061228, end: 20061228
  21. UNKNOWN GADOLINIUM BASED CONTRAST AGENT [Suspect]
     Dates: start: 20061229, end: 20061229
  22. UNKNOWN GADOLINIUM BASED CONTRAST AGENT [Suspect]
     Dates: start: 20070102, end: 20070102
  23. UNKNOWN GADOLINIUM BASED CONTRAST AGENT [Suspect]
     Dates: start: 20070114, end: 20070114
  24. UNKNOWN GADOLINIUM BASED CONTRAST AGENT [Suspect]
     Dates: start: 20071004, end: 20071004
  25. UNKNOWN GADOLINIUM BASED CONTRAST AGENT [Suspect]
     Dates: start: 20071025, end: 20071025
  26. UNKNOWN GADOLINIUM BASED CONTRAST AGENT [Suspect]
     Dates: start: 20071219, end: 20071219
  27. UNKNOWN GADOLINIUM BASED CONTRAST AGENT [Suspect]
     Dates: start: 20080427, end: 20080427
  28. UNKNOWN GADOLINIUM BASED CONTRAST AGENT [Suspect]
     Dates: start: 20080516, end: 20080516
  29. UNKNOWN GADOLINIUM BASED CONTRAST AGENT [Suspect]
     Dates: start: 20080530, end: 20080530
  30. UNKNOWN GADOLINIUM BASED CONTRAST AGENT [Suspect]
     Dates: start: 20080601, end: 20080601
  31. UNKNOWN GADOLINIUM BASED CONTRAST AGENT [Suspect]
     Dates: start: 20080710, end: 20080710
  32. UNKNOWN GADOLINIUM BASED CONTRAST AGENT [Suspect]
     Dates: start: 20080815, end: 20080815
  33. UNKNOWN GADOLINIUM BASED CONTRAST AGENT [Suspect]
     Dates: start: 20081017, end: 20081017
  34. UNKNOWN GADOLINIUM BASED CONTRAST AGENT [Suspect]
     Dates: start: 20081121, end: 20081121
  35. UNKNOWN GADOLINIUM BASED CONTRAST AGENT [Suspect]
     Dates: start: 20090520, end: 20090520
  36. UNKNOWN GADOLINIUM BASED CONTRAST AGENT [Suspect]
     Dates: start: 20090522, end: 20090522

REACTIONS (6)
  - ADVERSE EVENT [None]
  - DEFORMITY [None]
  - GENERAL PHYSICAL HEALTH DETERIORATION [None]
  - NEPHROGENIC SYSTEMIC FIBROSIS [None]
  - PAIN [None]
  - SKIN FIBROSIS [None]
